FAERS Safety Report 18586255 (Version 1)
Quarter: 2020Q4

REPORT INFORMATION
  Report Type: Spontaneous
  Country: US (occurrence: US)
  Receive Date: 20201207
  Receipt Date: 20201207
  Transmission Date: 20210114
  Serious: No
  Sender: FDA-Public Use
  Company Number: US-KYOWAKIRIN-2020BKK021139

PATIENT

DRUGS (1)
  1. SANCUSO [Suspect]
     Active Substance: GRANISETRON
     Indication: PROPHYLAXIS OF NAUSEA AND VOMITING
     Dosage: 1 PATCH AS DIRECTED 1 DAY PRIOR TO CHEMOTHERAPY
     Route: 062
     Dates: start: 2020

REACTIONS (6)
  - Application site pruritus [Not Recovered/Not Resolved]
  - Skin exfoliation [Unknown]
  - Application site hypersensitivity [Unknown]
  - Skin haemorrhage [Unknown]
  - Application site erythema [Not Recovered/Not Resolved]
  - Application site rash [Not Recovered/Not Resolved]

NARRATIVE: CASE EVENT DATE: 2020
